FAERS Safety Report 22187605 (Version 2)
Quarter: 2023Q2

REPORT INFORMATION
  Report Type: Spontaneous
  Country: US (occurrence: US)
  Receive Date: 20230407
  Receipt Date: 20230621
  Transmission Date: 20230721
  Serious: Yes (Hospitalization)
  Sender: FDA-Public Use
  Company Number: US-KARYOPHARM-2023KPT000847

PATIENT

DRUGS (5)
  1. XPOVIO [Suspect]
     Active Substance: SELINEXOR
     Indication: Plasma cell myeloma
     Dosage: 50 MG, WEEKLY
     Route: 048
     Dates: start: 20230130
  2. KLONOPIN [Concomitant]
     Active Substance: CLONAZEPAM
  3. OLANZAPINE [Concomitant]
     Active Substance: OLANZAPINE
  4. FUROSEMIDE [Concomitant]
     Active Substance: FUROSEMIDE
  5. MORPHINE [Concomitant]
     Active Substance: MORPHINE
     Dosage: 30 MG, BID

REACTIONS (8)
  - Pneumonia [Unknown]
  - Blood potassium decreased [Recovered/Resolved]
  - Insomnia [Unknown]
  - Pain [Unknown]
  - Affect lability [Unknown]
  - Peripheral swelling [Unknown]
  - Fatigue [Unknown]
  - Platelet count decreased [Unknown]

NARRATIVE: CASE EVENT DATE: 20230201
